FAERS Safety Report 9697380 (Version 1)
Quarter: 2013Q4

REPORT INFORMATION
  Report Type: Spontaneous
  Country: US (occurrence: None)
  Receive Date: 20131119
  Receipt Date: 20131119
  Transmission Date: 20140711
  Serious: Yes (Other)
  Sender: FDA-Public Use
  Company Number: None

PATIENT
  Age: 56 Year
  Sex: Male

DRUGS (1)
  1. EXJADE [Suspect]
     Route: 048
     Dates: start: 20130418, end: 20130910

REACTIONS (3)
  - Nephropathy toxic [None]
  - Urine output decreased [None]
  - Creatinine renal clearance decreased [None]
